FAERS Safety Report 12174497 (Version 3)
Quarter: 2016Q2

REPORT INFORMATION
  Report Type: Spontaneous
  Country: US (occurrence: US)
  Receive Date: 20160312
  Receipt Date: 20160420
  Transmission Date: 20160815
  Serious: No
  Sender: FDA-Public Use
  Company Number: PHEH2016US005578

PATIENT
  Age: 53 Year
  Sex: Male

DRUGS (1)
  1. VOTRIENT [Suspect]
     Active Substance: PAZOPANIB HYDROCHLORIDE
     Indication: RENAL CANCER
     Dosage: 600 MG, QD
     Route: 048
     Dates: start: 20140728

REACTIONS (4)
  - Erythema [Unknown]
  - Dyspnoea [Unknown]
  - Chest pain [Unknown]
  - Hiccups [Unknown]

NARRATIVE: CASE EVENT DATE: 20160303
